FAERS Safety Report 4800301-9 (Version None)
Quarter: 2005Q4

REPORT INFORMATION
  Report Type: 
  Country: None (occurrence: None)
  Receive Date: 20051013
  Receipt Date: 20050929
  Transmission Date: 20060501
  Serious: Yes (Hospitalization)
  Sender: FDA-Public Use
  Company Number: 218168

PATIENT
  Age: 61 Year
  Sex: Female

DRUGS (1)
  1. RAPTIVA [Suspect]
     Indication: PSORIASIS
     Dosage: 0.8 ML , 1/WEEK, SUBCUTANEOUS
     Route: 058
     Dates: start: 20050608

REACTIONS (4)
  - MENINGITIS VIRAL [None]
  - RADICULITIS [None]
  - SENSORY LOSS [None]
  - VERTIGO [None]
